FAERS Safety Report 18188292 (Version 5)
Quarter: 2021Q3

REPORT INFORMATION
  Report Type: Report from Study
  Country: US (occurrence: US)
  Receive Date: 20200824
  Receipt Date: 20210701
  Transmission Date: 20211014
  Serious: Yes (Other)
  Sender: FDA-Public Use
  Company Number: US-SHIRE-US202024192

PATIENT
  Age: 36 Year
  Sex: Female

DRUGS (2)
  1. LANADELUMAB [Suspect]
     Active Substance: LANADELUMAB
     Indication: PRODUCT USED FOR UNKNOWN INDICATION
     Dosage: 300 MILLIGRAM, Q2WEEKS
     Route: 058
     Dates: start: 20180921
  2. LANADELUMAB [Suspect]
     Active Substance: LANADELUMAB
     Dosage: 300 MILLIGRAM, Q2WEEKS
     Route: 058
     Dates: start: 20180920

REACTIONS (4)
  - Exposure during pregnancy [Not Recovered/Not Resolved]
  - Abortion spontaneous [Recovering/Resolving]
  - Hereditary angioedema [Recovered/Resolved]
  - Product dose omission issue [Recovering/Resolving]

NARRATIVE: CASE EVENT DATE: 20200725
